FAERS Safety Report 24799683 (Version 2)
Quarter: 2025Q1

REPORT INFORMATION
  Report Type: Spontaneous
  Country: US (occurrence: US)
  Receive Date: 20250102
  Receipt Date: 20250210
  Transmission Date: 20250408
  Serious: Yes (Other)
  Sender: BAYER HEALTHCARE LLC
  Company Number: US-BAYER-2025A000204

PATIENT
  Age: 63 Year
  Sex: Female

DRUGS (1)
  1. BAYER LOW DOSE [Suspect]
     Active Substance: ASPIRIN
     Dosage: 1 DF, QD, AT NIGHT BEFORE BED
     Route: 048

REACTIONS (3)
  - Choking [Unknown]
  - Product taste abnormal [Unknown]
  - Wrong technique in product usage process [None]
